FAERS Safety Report 14636546 (Version 1)
Quarter: 2018Q1

REPORT INFORMATION
  Report Type: Spontaneous
  Country: US (occurrence: US)
  Receive Date: 20180314
  Receipt Date: 20180314
  Transmission Date: 20180509
  Serious: Yes (Death)
  Sender: FDA-Public Use
  Company Number: US-PFIZER INC-2017382927

PATIENT
  Age: 70 Year
  Sex: Male

DRUGS (3)
  1. ANAKINRA [Concomitant]
     Active Substance: ANAKINRA
     Dosage: 100 MG, UNK
  2. IBRANCE [Suspect]
     Active Substance: PALBOCICLIB
     Indication: COLON CANCER
     Dosage: 75 MG, CYCLIC (MOUTH DAILY (WITH FOOD) 21 DAYS ON AND 7 DAYS OFF)
     Route: 048
     Dates: start: 20170817
  3. MEKINIST [Concomitant]
     Active Substance: TRAMETINIB DIMETHYL SULFOXIDE
     Dosage: 0.5 MG, UNK

REACTIONS (2)
  - Product use in unapproved indication [Unknown]
  - Death [Fatal]
